FAERS Safety Report 9523231 (Version 1)
Quarter: 2013Q3

REPORT INFORMATION
  Report Type: Report from Study
  Country: US (occurrence: US)
  Receive Date: 20130913
  Receipt Date: 20130913
  Transmission Date: 20140515
  Serious: Yes (Death)
  Sender: FDA-Public Use
  Company Number: US-PURDUE-USA-2013-0106222

PATIENT
  Age: 67 Year
  Sex: Male

DRUGS (5)
  1. OXYCONTIN (NDA 22-272) [Suspect]
     Indication: PRODUCT USED FOR UNKNOWN INDICATION
  2. ETHANOL [Suspect]
     Indication: ALCOHOL ABUSE
  3. FENTANYL [Suspect]
     Indication: ABDOMINAL PAIN
  4. HYDROCODONE [Suspect]
     Indication: ABDOMINAL PAIN
  5. APAP [Suspect]
     Indication: ABDOMINAL PAIN

REACTIONS (8)
  - Substance abuse [Fatal]
  - Intentional drug misuse [Fatal]
  - Septic shock [Fatal]
  - Disseminated intravascular coagulation [Fatal]
  - Rhabdomyolysis [Fatal]
  - Cholecystitis [Fatal]
  - Hepatic enzyme increased [Fatal]
  - Abdominal pain [Fatal]
